FAERS Safety Report 18766051 (Version 5)
Quarter: 2021Q1

REPORT INFORMATION
  Report Type: Report from Study
  Country: None (occurrence: CA)
  Receive Date: 20210121
  Receipt Date: 20210215
  Transmission Date: 20210419
  Serious: Yes (Hospitalization, Other)
  Sender: FDA-Public Use
  Company Number: CA-ABBVIE-21K-028-3736772-00

PATIENT
  Age: 73 Year
  Sex: Female

DRUGS (1)
  1. RINVOQ [Suspect]
     Active Substance: UPADACITINIB
     Indication: RHEUMATOID ARTHRITIS
     Route: 048
     Dates: start: 20201028

REACTIONS (6)
  - Fall [Unknown]
  - Mobility decreased [Unknown]
  - Blood pressure decreased [Unknown]
  - Syncope [Unknown]
  - Limb injury [Unknown]
  - Syncope [Unknown]

NARRATIVE: CASE EVENT DATE: 20201223
